FAERS Safety Report 6348913-8 (Version None)
Quarter: 2009Q3

REPORT INFORMATION
  Report Type: 
  Country: None (occurrence: None)
  Receive Date: 20090908
  Receipt Date: 20090826
  Transmission Date: 20100115
  Serious: Yes (Hospitalization)
  Sender: FDA-Public Use
  Company Number: 230225J09USA

PATIENT
  Age: 60 Year
  Sex: Female

DRUGS (6)
  1. REBIF [Suspect]
     Indication: MULTIPLE SCLEROSIS
     Dosage: 44 MCG, 3 IN 1 WEEKS, SUBCUTANEOUS
     Route: 058
     Dates: start: 20060417
  2. GABAPENTIN [Concomitant]
  3. AMITRIPTYLINE HCL [Concomitant]
  4. ARIIMIDEX (ANASTROZOLE) [Concomitant]
  5. CLONIDINE [Concomitant]
  6. AMLODIPINE [Concomitant]

REACTIONS (2)
  - ARTHRALGIA [None]
  - INTERVERTEBRAL DISC PROTRUSION [None]
